FAERS Safety Report 5761190-1 (Version None)
Quarter: 2008Q2

REPORT INFORMATION
  Report Type: 
  Country: None (occurrence: None)
  Receive Date: 20080606
  Receipt Date: 20080602
  Transmission Date: 20081010
  Serious: Yes (Other)
  Sender: FDA-Public Use
  Company Number: B0523695A

PATIENT
  Age: 82 Year
  Sex: Male

DRUGS (2)
  1. MELPHALAN [Suspect]
     Indication: MYELODYSPLASTIC SYNDROME
     Dosage: 2MG ALTERNATE DAYS
     Route: 048
     Dates: start: 20080512
  2. OMNIC [Concomitant]
     Route: 065

REACTIONS (1)
  - DEAFNESS [None]
